FAERS Safety Report 12182365 (Version 1)
Quarter: 2016Q1

REPORT INFORMATION
  Report Type: Spontaneous
  Country: KW (occurrence: KW)
  Receive Date: 20160316
  Receipt Date: 20160316
  Transmission Date: 20160526
  Serious: Yes (Hospitalization, Other)
  Sender: FDA-Public Use
  Company Number: KW-009507513-1603KWT007056

PATIENT
  Age: 50 Year
  Sex: Male

DRUGS (3)
  1. CASPOFUNGIN ACETATE [Suspect]
     Active Substance: CASPOFUNGIN ACETATE
     Indication: SYSTEMIC CANDIDA
     Dosage: 50 MG, ONCE DAILY (OD)
     Route: 042
  2. MERONEM [Concomitant]
     Active Substance: MEROPENEM
     Indication: SEPSIS
     Route: 042
  3. VANCOMYCIN [Concomitant]
     Active Substance: VANCOMYCIN
     Indication: SEPSIS
     Route: 042

REACTIONS (1)
  - Pancytopenia [Not Recovered/Not Resolved]
